FAERS Safety Report 5784156-4 (Version None)
Quarter: 2008Q2

REPORT INFORMATION
  Report Type: 
  Country: None (occurrence: None)
  Receive Date: 20080605
  Receipt Date: 20080401
  Transmission Date: 20081010
  Serious: No
  Sender: FDA-Public Use
  Company Number: A0718623A

PATIENT
  Sex: Female

DRUGS (3)
  1. ALLI [Suspect]
     Dates: start: 20080115
  2. BIRTH CONTROL PILLS [Concomitant]
  3. ANTI-INFLAMMATORY [Concomitant]

REACTIONS (3)
  - ORAL HERPES [None]
  - STEATORRHOEA [None]
  - WEIGHT INCREASED [None]
